FAERS Safety Report 5032336-8 (Version None)
Quarter: 2006Q2

REPORT INFORMATION
  Report Type: 
  Country: None (occurrence: None)
  Receive Date: 20060508
  Receipt Date: 20051213
  Transmission Date: 20061013
  Serious: Yes (Hospitalization)
  Sender: FDA-Public Use
  Company Number: 230307M05USA

PATIENT
  Age: 25 Year
  Sex: Female

DRUGS (5)
  1. REBIF [Suspect]
     Indication: MULTIPLE SCLEROSIS
     Dosage: 44 MCG, 3 IN 1 WEEKS, SUBCUTANEOUS
     Route: 058
     Dates: start: 20041201, end: 20051215
  2. NEURONTIN [Concomitant]
  3. VALIUM [Concomitant]
  4. ALBUTEROL (SALBUTAMOL /00139501/) [Concomitant]
  5. ZANAFLEX [Concomitant]

REACTIONS (1)
  - INJECTION SITE NECROSIS [None]
